FAERS Safety Report 7753925-3 (Version None)
Quarter: 2011Q3

REPORT INFORMATION
  Report Type: 
  Country: None (occurrence: None)
  Receive Date: 20110915
  Receipt Date: 20110906
  Transmission Date: 20111222
  Serious: Yes (Other)
  Sender: FDA-Public Use
  Company Number: US-ASTRAZENECA-2009SE31704

PATIENT
  Age: 47 Year
  Sex: Female
  Weight: 83.9 kg

DRUGS (9)
  1. ARIMIDEX [Suspect]
     Route: 048
  2. SEROQUEL [Suspect]
     Route: 048
  3. SEROQUEL [Suspect]
     Route: 048
  4. MORPHINE SULFATE [Concomitant]
  5. XANAX [Concomitant]
  6. SEROQUEL [Suspect]
     Indication: BIPOLAR DISORDER
     Route: 048
     Dates: start: 20060101
  7. FENTANYL [Concomitant]
  8. GABAPENTIN [Concomitant]
  9. SEROQUEL [Suspect]
     Indication: SCHIZOAFFECTIVE DISORDER
     Route: 048
     Dates: start: 20060101

REACTIONS (3)
  - MIDDLE INSOMNIA [None]
  - BONE NEOPLASM MALIGNANT [None]
  - RECURRENT CANCER [None]
